FAERS Safety Report 5169383-1 (Version None)
Quarter: 2006Q4

REPORT INFORMATION
  Report Type: 
  Country: None (occurrence: None)
  Receive Date: 20061127
  Receipt Date: 20061120
  Transmission Date: 20070319
  Serious: Yes (Other)
  Sender: FDA-Public Use
  Company Number: GXKR2006GB07496

PATIENT
  Age: 46 Year
  Sex: Male

DRUGS (3)
  1. CLARITHROMYCIN [Suspect]
     Indication: HELICOBACTER INFECTION
     Dosage: 250 MG, ORAL
     Route: 048
     Dates: start: 20061012, end: 20061017
  2. CITALOPRAM HYDROBROMIDE [Concomitant]
  3. LANSOPRAZOLE [Concomitant]

REACTIONS (1)
  - RHABDOMYOLYSIS [None]
